FAERS Safety Report 17332263 (Version 3)
Quarter: 2023Q1

REPORT INFORMATION
  Report Type: Report from Study
  Country: US (occurrence: US)
  Receive Date: 20200128
  Receipt Date: 20230306
  Transmission Date: 20230417
  Serious: Yes (Other)
  Sender: FDA-Public Use
  Company Number: US-SHIRE-US202002307

PATIENT
  Age: 65 Year
  Sex: Female

DRUGS (1)
  1. HUMAN IMMUNOGLOBULIN G [Suspect]
     Active Substance: HUMAN IMMUNOGLOBULIN G
     Indication: Immunodeficiency common variable
     Dosage: UNK
     Route: 065

REACTIONS (5)
  - Transient ischaemic attack [Unknown]
  - Foot fracture [Unknown]
  - COVID-19 [Unknown]
  - Memory impairment [Unknown]
  - Headache [Unknown]

NARRATIVE: CASE EVENT DATE: 20190215
